FAERS Safety Report 7500435-4 (Version None)
Quarter: 2011Q2

REPORT INFORMATION
  Report Type: 
  Country: None (occurrence: None)
  Receive Date: 20110524
  Receipt Date: 20110317
  Transmission Date: 20111010
  Serious: No
  Sender: FDA-Public Use
  Company Number: US-BRISTOL-MYERS SQUIBB COMPANY-15615438

PATIENT
  Age: 48 Year
  Sex: Female

DRUGS (4)
  1. ONGLYZA [Suspect]
  2. ZOCOR [Concomitant]
  3. HIZAAR [Concomitant]
     Dosage: 1 DF:50/12.5 UNIT NOS
  4. GLUCOTROL [Concomitant]

REACTIONS (1)
  - OEDEMA [None]
